FAERS Safety Report 21923666 (Version 1)
Quarter: 2023Q1

REPORT INFORMATION
  Report Type: Spontaneous
  Country: CA (occurrence: CA)
  Receive Date: 20230130
  Receipt Date: 20230130
  Transmission Date: 20230418
  Serious: Yes (Other)
  Sender: FDA-Public Use
  Company Number: CA-CELLTRION INC.-2023CA002092

PATIENT

DRUGS (7)
  1. INFLIXIMAB [Suspect]
     Active Substance: INFLIXIMAB
     Indication: Crohn^s disease
     Dosage: 300 MG (1 EVERY 8 WEEKS)
     Route: 040
  2. STELARA [Suspect]
     Active Substance: USTEKINUMAB
     Route: 058
  3. ADALIMUMAB [Concomitant]
     Active Substance: ADALIMUMAB
     Route: 058
  4. AZATHIOPRINE [Concomitant]
     Active Substance: AZATHIOPRINE
     Dosage: 150 MG (1 EVERY 4 WEEKS)
  5. ENTYVIO [Concomitant]
     Active Substance: VEDOLIZUMAB
  6. IMURAN [Concomitant]
     Active Substance: AZATHIOPRINE
  7. PANCREATIN [Concomitant]
     Active Substance: PANCRELIPASE

REACTIONS (1)
  - Pancreatitis relapsing [Unknown]
